FAERS Safety Report 7367628 (Version 4)
Quarter: 2012Q4

REPORT INFORMATION
  Report Type: 
  Country: US (occurrence: US)
  Receive Date: 20100427
  Receipt Date: 20120905
  Transmission Date: 20130627
  Serious: Yes (Other)
  Sender: FDA-Public Use
  Company Number: US-PFIZER INC-2010048531

PATIENT
  Age: 24 Year
  Sex: Female
  Weight: 66.67 kg

DRUGS (4)
  1. CORTEF [Suspect]
     Indication: ADRENAL INSUFFICIENCY
     Dosage: 20 mg tablet in the morning and 10 mg tablet at night
     Route: 048
     Dates: start: 19870222
  2. CORTEF [Suspect]
     Dosage: 20 mg tablet in the morning and 10 mg tablet at night
     Route: 048
  3. PREDNISONE [Suspect]
     Indication: ADRENAL INSUFFICIENCY
     Dosage: UNK
  4. FLORINEF [Concomitant]
     Indication: ADRENAL INSUFFICIENCY
     Dosage: 0.1 mg splitting daily
     Route: 048

REACTIONS (8)
  - Memory impairment [Not Recovered/Not Resolved]
  - Haemorrhage [Unknown]
  - Blood cholesterol increased [Unknown]
  - Oesophageal pain [Unknown]
  - Drug ineffective [Unknown]
  - Throat irritation [Unknown]
  - Dyspepsia [Unknown]
  - Hormone level abnormal [Unknown]
